FAERS Safety Report 4380905-0 (Version None)
Quarter: 2004Q2

REPORT INFORMATION
  Report Type: 
  Country: None (occurrence: None)
  Receive Date: 20040616
  Receipt Date: 20040527
  Transmission Date: 20050107
  Serious: Yes (Death)
  Sender: FDA-Public Use
  Company Number: JP_040503225

PATIENT
  Age: 47 Year
  Sex: Female
  Weight: 53 kg

DRUGS (8)
  1. ZYPREXA [Suspect]
     Indication: SCHIZOPHRENIA
     Dosage: 5 MG/2 DAY
     Dates: start: 20040324, end: 20040427
  2. LEXOTAN (BROMAZEPAM) [Concomitant]
  3. HIBERNA (PROMETHAZINE HYDROCHLORIDE) [Concomitant]
  4. VEGETAMIN B [Concomitant]
  5. EURODIN (ESTAZOLAM) [Concomitant]
  6. ROHIPNOL (FLUNITRAZEPAM) [Concomitant]
  7. ALOSENN [Concomitant]
  8. TINELAC (SENNOSIDE A+B) [Concomitant]

REACTIONS (2)
  - COMPLETED SUICIDE [None]
  - INTENTIONAL OVERDOSE [None]
